FAERS Safety Report 17158698 (Version 1)
Quarter: 2019Q4

REPORT INFORMATION
  Report Type: Spontaneous
  Country: US (occurrence: US)
  Receive Date: 20191122
  Receipt Date: 20191122
  Transmission Date: 20200122
  Serious: Yes (Hospitalization)
  Sender: FDA-Public Use
  Company Number: None

PATIENT

DRUGS (12)
  1. LEVOTHYROXIN [Concomitant]
     Active Substance: LEVOTHYROXINE
  2. ALLOPURINOL. [Concomitant]
     Active Substance: ALLOPURINOL
  3. OPSUMIT [Concomitant]
     Active Substance: MACITENTAN
  4. BETHANECHOL [Concomitant]
     Active Substance: BETHANECHOL
  5. PANTOPRAZOLE [Concomitant]
     Active Substance: PANTOPRAZOLE
  6. SILDENAFIL 20MG TAB [Suspect]
     Active Substance: SILDENAFIL
     Indication: PULMONARY ARTERIAL HYPERTENSION
     Route: 048
     Dates: start: 20170609
  7. ORENITRAM [Concomitant]
     Active Substance: TREPROSTINIL
  8. GABAPENTIN. [Concomitant]
     Active Substance: GABAPENTIN
  9. SPIRONOLACT [Concomitant]
     Active Substance: SPIRONOLACTONE
  10. BUMEX [Concomitant]
     Active Substance: BUMETANIDE
  11. REMODULIN [Concomitant]
     Active Substance: TREPROSTINIL
  12. LOSARTAN POT [Concomitant]
     Active Substance: LOSARTAN POTASSIUM

REACTIONS (2)
  - Fluid retention [None]
  - Weight increased [None]
